FAERS Safety Report 4437594-6 (Version None)
Quarter: 2004Q3

REPORT INFORMATION
  Report Type: 
  Country: None (occurrence: None)
  Receive Date: 20040830
  Receipt Date: 20040830
  Transmission Date: 20050211
  Serious: Yes (Other)
  Sender: FDA-Public Use
  Company Number: None

PATIENT
  Age: 57 Year
  Sex: Female
  Weight: 73.4827 kg

DRUGS (3)
  1. BEXTRA [Suspect]
     Indication: RASH
     Dosage: 20 MG DAILY ORAL
     Route: 048
     Dates: start: 20040813, end: 20040825
  2. ESTRACE [Concomitant]
  3. LEVOTHYROID [Concomitant]

REACTIONS (1)
  - RASH [None]
